FAERS Safety Report 4920590-X (Version None)
Quarter: 2006Q1

REPORT INFORMATION
  Report Type: 
  Country: None (occurrence: None)
  Receive Date: 20060223
  Receipt Date: 20060203
  Transmission Date: 20060701
  Serious: Yes (Hospitalization, Other)
  Sender: FDA-Public Use
  Company Number: PHFR2006GB00782

PATIENT
  Age: 66 Year
  Sex: Female

DRUGS (5)
  1. ESTRADERM [Suspect]
     Indication: HORMONE REPLACEMENT THERAPY
     Dosage: 50UG/DAY
     Route: 062
  2. ASPIRIN [Suspect]
     Dosage: 75 MG/DAY
     Route: 048
  3. DOSULEPIN [Suspect]
     Dosage: UNK, UNK
     Route: 048
     Dates: end: 20050701
  4. OXYBUTYNIN [Concomitant]
  5. THYROXINE [Concomitant]

REACTIONS (1)
  - GRANULOMATOUS LIVER DISEASE [None]
